FAERS Safety Report 16663851 (Version 1)
Quarter: 2019Q3

REPORT INFORMATION
  Report Type: Spontaneous
  Country: US (occurrence: US)
  Receive Date: 20190619
  Receipt Date: 20190619
  Transmission Date: 20191004
  Serious: Yes (Other)
  Sender: FDA-Public Use
  Company Number: None

PATIENT
  Age: 52 Year
  Sex: Male
  Weight: 92.99 kg

DRUGS (2)
  1. GENERIC VIAGRA 200MG [Suspect]
     Active Substance: SILDENAFIL CITRATE
  2. SILDENAFIL -GENERIC VIAGRA, 100MG [Suspect]
     Active Substance: SILDENAFIL CITRATE

REACTIONS (8)
  - Dizziness [None]
  - Headache [None]
  - Diarrhoea [None]
  - Therapeutic response changed [None]
  - Nausea [None]
  - Feeling hot [None]
  - Palpitations [None]
  - Erythema [None]

NARRATIVE: CASE EVENT DATE: 20190303
